FAERS Safety Report 19765274 (Version 1)
Quarter: 2021Q3

REPORT INFORMATION
  Report Type: Spontaneous
  Country: FR (occurrence: FR)
  Receive Date: 20210830
  Receipt Date: 20210830
  Transmission Date: 20211014
  Serious: Yes (Hospitalization)
  Sender: FDA-Public Use
  Company Number: FR-ELI_LILLY_AND_COMPANY-FR202108009856

PATIENT
  Age: 23 Year
  Sex: Female

DRUGS (4)
  1. LOXAPAC [LOXAPINE HYDROCHLORIDE] [Suspect]
     Active Substance: LOXAPINE HYDROCHLORIDE
     Indication: PSYCHIATRIC DECOMPENSATION
     Dosage: UNK UNK, UNKNOWN
     Route: 048
     Dates: start: 20210731
  2. OLANZAPINE. [Suspect]
     Active Substance: OLANZAPINE
     Indication: PSYCHIATRIC DECOMPENSATION
     Dosage: UNK UNK, UNKNOWN
     Route: 048
     Dates: start: 20210731, end: 20210731
  3. TERALITHE [Suspect]
     Active Substance: LITHIUM CARBONATE
     Indication: PSYCHIATRIC DECOMPENSATION
     Dosage: 3 DOSAGE FORM, DAILY
     Route: 048
  4. VALIUM [Suspect]
     Active Substance: DIAZEPAM
     Indication: PSYCHIATRIC DECOMPENSATION
     Dosage: UNK UNK, UNKNOWN
     Route: 048
     Dates: start: 20210731

REACTIONS (1)
  - Sinus bradycardia [Recovered/Resolved]

NARRATIVE: CASE EVENT DATE: 20210731
